FAERS Safety Report 14664682 (Version 1)
Quarter: 2018Q1

REPORT INFORMATION
  Report Type: Spontaneous
  Country: US (occurrence: US)
  Receive Date: 20180321
  Receipt Date: 20180321
  Transmission Date: 20180509
  Serious: No
  Sender: FDA-Public Use
  Company Number: US-GILEAD-2018-0327893

PATIENT
  Sex: Female

DRUGS (2)
  1. RANEXA [Suspect]
     Active Substance: RANOLAZINE
     Indication: PRODUCT USED FOR UNKNOWN INDICATION
     Dosage: 1000 MG, QD IN AM
     Route: 065
  2. RANEXA [Suspect]
     Active Substance: RANOLAZINE
     Dosage: 500 MG, QD IN PM
     Route: 065

REACTIONS (1)
  - Off label use [Unknown]
